FAERS Safety Report 14910642 (Version 2)
Quarter: 2018Q2

REPORT INFORMATION
  Report Type: Report from Study
  Country: US (occurrence: US)
  Receive Date: 20180517
  Receipt Date: 20180530
  Transmission Date: 20180711
  Serious: No
  Sender: FDA-Public Use
  Company Number: US-B.I. PHARMACEUTICALS,INC./RIDGEFIELD-2018-BI-026102

PATIENT
  Age: 74 Year
  Sex: Female

DRUGS (3)
  1. OFEV [Suspect]
     Active Substance: NINTEDANIB
     Route: 048
     Dates: start: 20180511
  2. OFEV [Suspect]
     Active Substance: NINTEDANIB
     Indication: IDIOPATHIC PULMONARY FIBROSIS
     Dates: start: 20180410
  3. OFEV [Suspect]
     Active Substance: NINTEDANIB

REACTIONS (4)
  - Nausea [Unknown]
  - Faeces discoloured [Unknown]
  - Vomiting [Unknown]
  - Haematochezia [Unknown]

NARRATIVE: CASE EVENT DATE: 20180511
